FAERS Safety Report 21239095 (Version 6)
Quarter: 2025Q3

REPORT INFORMATION
  Report Type: Report from Study
  Country: US (occurrence: US)
  Receive Date: 20220822
  Receipt Date: 20250923
  Transmission Date: 20251020
  Serious: No
  Sender: AGIOS PHARMACEUTICALS
  Company Number: US-AGIOS-2208US03114

PATIENT
  Sex: Female
  Weight: 38.095 kg

DRUGS (3)
  1. MITAPIVAT [Suspect]
     Active Substance: MITAPIVAT
     Indication: Pyruvate kinase deficiency anaemia
     Route: 048
     Dates: start: 20220629
  2. MITAPIVAT [Suspect]
     Active Substance: MITAPIVAT
     Route: 048
     Dates: start: 20220722
  3. ATENOLOL [Concomitant]
     Active Substance: ATENOLOL
     Indication: Product used for unknown indication
     Route: 048

REACTIONS (7)
  - Adverse reaction [Unknown]
  - Feeling abnormal [Unknown]
  - Dizziness [Unknown]
  - Sinus disorder [Unknown]
  - Headache [Unknown]
  - Palpitations [Unknown]
  - Insomnia [Unknown]
